FAERS Safety Report 12411906 (Version 3)
Quarter: 2016Q4

REPORT INFORMATION
  Report Type: Spontaneous
  Country: FR (occurrence: FR)
  Receive Date: 20160527
  Receipt Date: 20161202
  Transmission Date: 20170207
  Serious: Yes (Hospitalization)
  Sender: FDA-Public Use
  Company Number: FR-JNJFOC-20160514951

PATIENT
  Age: 31 Year
  Sex: Female

DRUGS (12)
  1. NOVORAPID [Concomitant]
     Active Substance: INSULIN ASPART
     Indication: PRODUCT USED FOR UNKNOWN INDICATION
     Route: 065
  2. ACTISKENAN [Concomitant]
     Active Substance: MORPHINE SULFATE
     Indication: ANKYLOSING SPONDYLITIS
     Route: 065
  3. SKENAN [Suspect]
     Active Substance: MORPHINE SULFATE
     Indication: ANKYLOSING SPONDYLITIS
     Route: 048
     Dates: start: 201601, end: 2016
  4. PARACETAMOL [Suspect]
     Active Substance: ACETAMINOPHEN
     Indication: PAIN
     Route: 048
     Dates: end: 20160424
  5. METOJECT [Concomitant]
     Active Substance: METHOTREXATE SODIUM
     Indication: PRODUCT USED FOR UNKNOWN INDICATION
     Route: 065
     Dates: start: 201501
  6. SKENAN [Suspect]
     Active Substance: MORPHINE SULFATE
     Indication: ANKYLOSING SPONDYLITIS
     Route: 048
     Dates: start: 20160423, end: 20160424
  7. ESOMEPRAZOLE [Suspect]
     Active Substance: ESOMEPRAZOLE
     Indication: PRODUCT USED FOR UNKNOWN INDICATION
     Dosage: IN THE MORNING
     Route: 048
     Dates: end: 20160424
  8. TRAMADOL. [Suspect]
     Active Substance: TRAMADOL
     Indication: PRODUCT USED FOR UNKNOWN INDICATION
     Route: 048
  9. SIMPONI [Suspect]
     Active Substance: GOLIMUMAB
     Indication: ANKYLOSING SPONDYLITIS
     Route: 058
     Dates: start: 201601
  10. CORTANCYL [Suspect]
     Active Substance: PREDNISONE
     Indication: ANKYLOSING SPONDYLITIS
     Route: 048
     Dates: start: 20160408, end: 20160422
  11. TRAMADOL. [Suspect]
     Active Substance: TRAMADOL
     Indication: PRODUCT USED FOR UNKNOWN INDICATION
     Dosage: 200 MG IN THE MORNING, 100 MG IN THE EVENING
     Route: 048
     Dates: end: 20160424
  12. SERESTA [Suspect]
     Active Substance: OXAZEPAM
     Indication: PRODUCT USED FOR UNKNOWN INDICATION
     Route: 048

REACTIONS (5)
  - Pancreatitis acute [Recovered/Resolved]
  - Off label use [Unknown]
  - Ankylosing spondylitis [Recovering/Resolving]
  - Product use issue [Unknown]
  - Pancreatolithiasis [Unknown]

NARRATIVE: CASE EVENT DATE: 201501
